FAERS Safety Report 4685491-3 (Version None)
Quarter: 2005Q2

REPORT INFORMATION
  Report Type: 
  Country: None (occurrence: None)
  Receive Date: 20050608
  Receipt Date: 20050426
  Transmission Date: 20051028
  Serious: Yes (Hospitalization)
  Sender: FDA-Public Use
  Company Number: PHFR2005GB01647

PATIENT
  Age: 51 Year
  Sex: Female

DRUGS (3)
  1. ZOMETA [Suspect]
     Indication: METASTASES TO BONE
     Dosage: 4MG ONCE
     Route: 042
     Dates: start: 20050422
  2. LETROZOLE [Concomitant]
  3. DICLOFENAC [Concomitant]

REACTIONS (4)
  - CLOSTRIDIAL INFECTION [None]
  - DIARRHOEA [None]
  - NAUSEA [None]
  - VOMITING [None]
